FAERS Safety Report 6286974-5 (Version None)
Quarter: 2009Q3

REPORT INFORMATION
  Report Type: 
  Country: None (occurrence: None)
  Receive Date: 20090728
  Receipt Date: 20090715
  Transmission Date: 20100115
  Serious: Yes (Hospitalization, Disabling)
  Sender: FDA-Public Use
  Company Number: BE-ELI_LILLY_AND_COMPANY-BE200907003374

PATIENT
  Sex: Male
  Weight: 61 kg

DRUGS (15)
  1. PEMETREXED [Suspect]
     Indication: NON-SMALL CELL LUNG CANCER
     Dosage: 500 MG/M2, ON D1 EVERY 21 DAYS
     Route: 042
     Dates: start: 20090324, end: 20090527
  2. PEMETREXED [Suspect]
     Dosage: ON D1 EVERY 21 DAYS
     Route: 042
     Dates: start: 20090615
  3. CISPLATIN [Suspect]
     Indication: NON-SMALL CELL LUNG CANCER
     Dosage: 75 MG/M2, ON D1 EVERY 21 DAYS
     Route: 042
     Dates: start: 20090324, end: 20090527
  4. BEST SUPPORTIVE CARE [Suspect]
     Indication: NON-SMALL CELL LUNG CANCER
  5. FOLIC ACID [Concomitant]
     Indication: PROPHYLAXIS
     Dates: start: 20090310
  6. VIT B12 [Concomitant]
     Indication: PROPHYLAXIS
     Dates: start: 20090310, end: 20090526
  7. DEXAMETHASONE [Concomitant]
     Indication: PROPHYLAXIS
     Dates: start: 20090706, end: 20090708
  8. ZOMETA [Concomitant]
     Indication: METASTASES TO BONE
     Dates: start: 20090225
  9. GARDENAL [Concomitant]
     Indication: ALCOHOLISM
     Dates: start: 19940101
  10. TENORMIN [Concomitant]
     Indication: ISCHAEMIC CARDIOMYOPATHY
     Dates: start: 20030101
  11. PLAVIX [Concomitant]
     Indication: ISCHAEMIC CARDIOMYOPATHY
     Dates: start: 20090326
  12. DOLZAM [Concomitant]
     Indication: BONE PAIN
     Dates: start: 20090225
  13. DAFALGAN [Concomitant]
     Indication: BONE PAIN
     Dosage: UNK, AS NEEDED
     Dates: start: 20090225
  14. DURAGESIC-100 [Concomitant]
     Indication: BONE PAIN
     Dates: start: 20090226
  15. NUROFEN [Concomitant]
     Indication: BONE PAIN
     Dates: start: 20090427

REACTIONS (1)
  - ERYSIPELAS [None]
